FAERS Safety Report 5047467-6 (Version None)
Quarter: 2006Q3

REPORT INFORMATION
  Report Type: 
  Country: None (occurrence: None)
  Receive Date: 20060710
  Receipt Date: 20060710
  Transmission Date: 20061208
  Serious: Yes (Other)
  Sender: FDA-Public Use
  Company Number: None

PATIENT
  Age: 55 Year
  Sex: Female

DRUGS (1)
  1. METOPROLOL [Suspect]
     Dosage: ONCE A DAY
     Route: 048

REACTIONS (8)
  - ARRHYTHMIA [None]
  - BLOOD POTASSIUM DECREASED [None]
  - CHEST DISCOMFORT [None]
  - DYSPNOEA [None]
  - HEART RATE INCREASED [None]
  - MEDICATION TAMPERING [None]
  - POOR QUALITY DRUG ADMINISTERED [None]
  - WOLFF-PARKINSON-WHITE SYNDROME [None]
